FAERS Safety Report 5341800-3 (Version None)
Quarter: 2007Q2

REPORT INFORMATION
  Report Type: 
  Country: None (occurrence: None)
  Receive Date: 20070601
  Receipt Date: 20070524
  Transmission Date: 20071010
  Serious: Yes (Other)
  Sender: FDA-Public Use
  Company Number: US-JNJFOC-20070506492

PATIENT
  Sex: Female
  Weight: 90.72 kg

DRUGS (2)
  1. FENTANYL TRANSDERMAL SYSTEM [Suspect]
     Indication: BACK PAIN
     Dosage: 1X 100UG/HR PATCH PLUS 1X 50UG/HR PATCH
     Route: 062
  2. SYNTHROID [Concomitant]
     Indication: HYPOTHYROIDISM
     Dosage: 1X 200 UG PLUS 2X 25 UG
     Route: 048

REACTIONS (6)
  - ATELECTASIS [None]
  - BLOOD CHOLESTEROL INCREASED [None]
  - DEPRESSION [None]
  - PAIN [None]
  - RESTLESS LEGS SYNDROME [None]
  - ULCER [None]
